FAERS Safety Report 13796678 (Version 3)
Quarter: 2018Q3

REPORT INFORMATION
  Report Type: Report from Study
  Country: US (occurrence: US)
  Receive Date: 20170726
  Receipt Date: 20180724
  Transmission Date: 20181010
  Serious: Yes (Hospitalization)
  Sender: FDA-Public Use
  Company Number: US-AMGEN-USASL2017044670

PATIENT
  Age: 64 Year
  Sex: Male

DRUGS (6)
  1. REVLIMID [Suspect]
     Active Substance: LENALIDOMIDE
     Dosage: UNK
     Route: 065
     Dates: start: 201708, end: 201708
  2. DEXAMETHASONE. [Concomitant]
     Active Substance: DEXAMETHASONE
     Dosage: UNK
     Dates: start: 201708, end: 201708
  3. KYPROLIS [Suspect]
     Active Substance: CARFILZOMIB
     Dosage: UNK
     Route: 065
     Dates: start: 201708, end: 201708
  4. REVLIMID [Suspect]
     Active Substance: LENALIDOMIDE
     Indication: PLASMA CELL MYELOMA
     Dosage: UNK
     Route: 065
  5. DEXAMETHASONE. [Concomitant]
     Active Substance: DEXAMETHASONE
     Indication: PLASMA CELL MYELOMA
     Dosage: UNK
  6. KYPROLIS [Suspect]
     Active Substance: CARFILZOMIB
     Indication: PLASMA CELL MYELOMA
     Dosage: UNK, ON DAY ONE, TWO, EIGHT, NINE, FIFTEEN, AND SIXTEEN IN EVERY TWENTY EIGHT DAYS
     Route: 065

REACTIONS (8)
  - Diarrhoea [Unknown]
  - Blood creatinine increased [Recovering/Resolving]
  - Oedema [Unknown]
  - Neuropathy peripheral [Unknown]
  - Hypoaesthesia oral [Unknown]
  - Off label use [Unknown]
  - Fatigue [Unknown]
  - Loss of personal independence in daily activities [Unknown]

NARRATIVE: CASE EVENT DATE: 20170427
